FAERS Safety Report 6637620-X (Version None)
Quarter: 2010Q1

REPORT INFORMATION
  Report Type: 
  Country: None (occurrence: None)
  Receive Date: 20100317
  Receipt Date: 20100310
  Transmission Date: 20100710
  Serious: Yes (Hospitalization)
  Sender: FDA-Public Use
  Company Number: DE-ABBOTT-10P-062-0631561-00

PATIENT
  Sex: Female

DRUGS (4)
  1. HUMIRA [Suspect]
     Indication: CROHN'S DISEASE
     Route: 058
     Dates: start: 20091001
  2. AZATHIOPRIN [Concomitant]
     Indication: DRUG USE FOR UNKNOWN INDICATION
  3. SALOFALK [Concomitant]
     Indication: DRUG USE FOR UNKNOWN INDICATION
  4. METRONIDAZOLE [Concomitant]
     Indication: DRUG USE FOR UNKNOWN INDICATION

REACTIONS (3)
  - DIARRHOEA HAEMORRHAGIC [None]
  - INFLUENZA LIKE ILLNESS [None]
  - SALMONELLOSIS [None]
